FAERS Safety Report 9338046 (Version 1)
Quarter: 2013Q2

REPORT INFORMATION
  Report Type: Spontaneous
  Country: GB (occurrence: GB)
  Receive Date: 20130610
  Receipt Date: 20130610
  Transmission Date: 20140414
  Serious: Yes (Hospitalization, Disabling, Other)
  Sender: FDA-Public Use
  Company Number: GB-009507513-1305GBR016950

PATIENT
  Age: 55 Year
  Sex: Female

DRUGS (9)
  1. ALENDRONATE SODIUM AND CHOLECALCIFEROL, MSD [Suspect]
     Indication: PROPHYLAXIS
     Dosage: 70 MG, QW
     Route: 048
     Dates: start: 200911, end: 20130516
  2. ALLOPURINOL [Concomitant]
  3. AMITRIPTYLINE HYDROCHLORIDE [Concomitant]
  4. ASPIRIN [Concomitant]
  5. CANDESARTAN [Concomitant]
  6. CEPHALEXIN [Concomitant]
  7. FUROSEMIDE [Concomitant]
  8. PREDNISOLONE [Concomitant]
  9. PROGRAF [Concomitant]

REACTIONS (3)
  - Weight bearing difficulty [Unknown]
  - Atypical femur fracture [Recovering/Resolving]
  - Pain in extremity [Unknown]
